FAERS Safety Report 8791329 (Version 2)
Quarter: 2012Q4

REPORT INFORMATION
  Report Type: Spontaneous
  Country: US (occurrence: None)
  Receive Date: 20120912
  Receipt Date: 20120918
  Transmission Date: 20130627
  Serious: Yes (Other)
  Sender: FDA-Public Use
  Company Number: M-12-027

PATIENT
  Age: 46 Year
  Sex: Female

DRUGS (2)
  1. LEVOTHYROXINE [Suspect]
     Indication: HASHIMOTO^S DISEASE
     Route: 048
     Dates: start: 201207
  2. LEVOTHYROXINE [Suspect]
     Indication: THYROIDECTOMY
     Route: 048
     Dates: start: 201207

REACTIONS (10)
  - Blood pressure fluctuation [None]
  - Burning sensation [None]
  - Palmar erythema [None]
  - Pruritus [None]
  - Headache [None]
  - Anxiety [None]
  - Treatment noncompliance [None]
  - Reaction to azo-dyes [None]
  - Product substitution issue [None]
  - Product quality issue [None]
